FAERS Safety Report 9714099 (Version 1)
Quarter: 2013Q4

REPORT INFORMATION
  Report Type: Spontaneous
  Country: US (occurrence: US)
  Receive Date: 20131126
  Receipt Date: 20131126
  Transmission Date: 20140711
  Serious: No
  Sender: FDA-Public Use
  Company Number: US-GILEAD-2008-0018869

PATIENT
  Sex: Female
  Weight: 113.4 kg

DRUGS (18)
  1. LETAIRIS [Suspect]
     Indication: PULMONARY ARTERIAL HYPERTENSION
     Route: 048
     Dates: start: 20080728
  2. COUMADIN [Concomitant]
  3. FUROSEMIDE [Concomitant]
  4. DIGOXIN [Concomitant]
  5. SPIRONOLACTONE [Concomitant]
  6. FOSAMAX [Concomitant]
  7. SINEMET [Concomitant]
  8. MIRAPEX [Concomitant]
  9. TYLENOL [Concomitant]
  10. ALBUTEROL [Concomitant]
  11. LIPITOR [Concomitant]
  12. COLACE [Concomitant]
  13. GABAPENTIN [Concomitant]
  14. PRILOSEC [Concomitant]
  15. FENTANYL [Concomitant]
  16. MULTIVITAMIN [Concomitant]
  17. LUTEIN [Concomitant]
  18. POTASSIUM CHLORIDE [Concomitant]

REACTIONS (2)
  - Glossodynia [None]
  - Swelling [None]
